FAERS Safety Report 21986643 (Version 5)
Quarter: 2023Q2

REPORT INFORMATION
  Report Type: Spontaneous
  Country: US (occurrence: US)
  Receive Date: 20230213
  Receipt Date: 20230620
  Transmission Date: 20230721
  Serious: Yes (Hospitalization)
  Sender: FDA-Public Use
  Company Number: US-PFIZER INC-PV202300026765

PATIENT
  Age: 72 Year
  Sex: Female

DRUGS (1)
  1. IBRANCE [Suspect]
     Active Substance: PALBOCICLIB
     Indication: Breast cancer metastatic
     Dosage: 100 MG, CYCLIC (DAILY ON DAYS 1-21, STOP FOR 7 DAYS, THEN REPEAT CYCLE)
     Route: 048

REACTIONS (5)
  - Musculoskeletal chest pain [Unknown]
  - Pain [Unknown]
  - Neoplasm progression [Unknown]
  - Gingival bleeding [Unknown]
  - Illness [Unknown]
